FAERS Safety Report 20250964 (Version 1)
Quarter: 2021Q4

REPORT INFORMATION
  Report Type: Spontaneous
  Country: US (occurrence: US)
  Receive Date: 20211229
  Receipt Date: 20211229
  Transmission Date: 20220303
  Serious: No
  Sender: FDA-Public Use
  Company Number: US-CLOVIS ONCOLOGY-CLO-2021-001317

PATIENT
  Sex: Female

DRUGS (1)
  1. RUBRACA [Suspect]
     Active Substance: RUCAPARIB CAMSYLATE
     Indication: Ovarian cancer
     Dosage: 300 MILLIGRAM, BID
     Route: 048
     Dates: start: 2021, end: 202108

REACTIONS (9)
  - Liver function test increased [Unknown]
  - Renal function test abnormal [Unknown]
  - Contusion [Recovering/Resolving]
  - Pain [Unknown]
  - Peripheral swelling [Recovering/Resolving]
  - Stomatitis [Recovering/Resolving]
  - Skin exfoliation [Unknown]
  - Blister [Unknown]
  - Fatigue [Recovering/Resolving]

NARRATIVE: CASE EVENT DATE: 20210101
